FAERS Safety Report 4928795-9 (Version None)
Quarter: 2006Q1

REPORT INFORMATION
  Report Type: 
  Country: None (occurrence: None)
  Receive Date: 20060227
  Receipt Date: 20060227
  Transmission Date: 20060701
  Serious: No
  Sender: FDA-Public Use
  Company Number: None

PATIENT
  Age: 50 Year
  Sex: Male
  Weight: 83.0083 kg

DRUGS (4)
  1. OXYCONTIN [Suspect]
     Indication: ACQUIRED IMMUNODEFICIENCY SYNDROME
     Dosage: 80 MG TID PO
     Route: 048
     Dates: start: 20030101
  2. OXYCONTIN [Suspect]
     Indication: MYELITIS
     Dosage: 80 MG TID PO
     Route: 048
     Dates: start: 20030101
  3. OXYCONTIN [Suspect]
     Indication: PAIN
     Dosage: 80 MG TID PO
     Route: 048
     Dates: start: 20030101
  4. DURAGESIC-100 [Concomitant]

REACTIONS (2)
  - DRUG INEFFECTIVE [None]
  - PHARMACEUTICAL PRODUCT COMPLAINT [None]
